FAERS Safety Report 4925756-0 (Version None)
Quarter: 2006Q1

REPORT INFORMATION
  Report Type: 
  Country: None (occurrence: None)
  Receive Date: 20060228
  Receipt Date: 20050311
  Transmission Date: 20060701
  Serious: Yes (Other)
  Sender: FDA-Public Use
  Company Number: US-GLAXOSMITHKLINE-A0549891A

PATIENT
  Age: 8 Year
  Sex: Female
  Weight: 44 kg

DRUGS (2)
  1. LAMICTAL [Suspect]
     Indication: EPILEPSY
     Route: 048
     Dates: start: 20050101, end: 20050301
  2. NO CONCURRENT MEDICATION [Concomitant]

REACTIONS (9)
  - CONJUNCTIVAL HYPERAEMIA [None]
  - HEADACHE [None]
  - LYMPHADENOPATHY [None]
  - MUCOUS MEMBRANE DISORDER [None]
  - PYREXIA [None]
  - RASH [None]
  - RASH PAPULAR [None]
  - SKIN EXFOLIATION [None]
  - STEVENS-JOHNSON SYNDROME [None]
